FAERS Safety Report 8337159-X (Version None)
Quarter: 2012Q2

REPORT INFORMATION
  Report Type: 
  Country: None (occurrence: None)
  Receive Date: 20120504
  Receipt Date: 20120425
  Transmission Date: 20120825
  Serious: Yes (Life-Threatening, Hospitalization, Disabling)
  Sender: FDA-Public Use
  Company Number: PHHY2012IT013802

PATIENT
  Age: 80 Year
  Sex: Female

DRUGS (7)
  1. OMEPRAZOLE [Concomitant]
     Dosage: 20 MG, DAILY
     Route: 048
  2. RAMIPRIL [Concomitant]
     Dosage: 2 DF, DAILY
  3. TASIGNA [Suspect]
     Indication: CHRONIC MYELOID LEUKAEMIA
     Dosage: 600 MG, DAILY
     Route: 048
     Dates: start: 20110125, end: 20110126
  4. BISOPROLOL FUMARATE [Concomitant]
     Dosage: 1 DF, DAILY
  5. ORAL ANTIDIABETICS [Concomitant]
  6. FUROSEMIDE [Concomitant]
     Dosage: 2 DF, DAILY
  7. SINTROM [Concomitant]

REACTIONS (1)
  - ACUTE MYOCARDIAL INFARCTION [None]
